FAERS Safety Report 7194037-X (Version None)
Quarter: 2010Q4

REPORT INFORMATION
  Report Type: 
  Country: None (occurrence: None)
  Receive Date: 20101223
  Receipt Date: 20100915
  Transmission Date: 20110411
  Serious: No
  Sender: FDA-Public Use
  Company Number: US-AMGEN-KDL433474

PATIENT

DRUGS (6)
  1. ENBREL [Suspect]
     Indication: RHEUMATOID ARTHRITIS
     Dosage: 50 MG, QWK
     Route: 058
     Dates: start: 20100810
  2. METHOTREXATE [Concomitant]
     Dosage: 20 MG, QWK
     Route: 058
     Dates: start: 20090101
  3. NAPROXEN [Concomitant]
     Dosage: 500 MG, BID
     Route: 048
     Dates: start: 20090101
  4. FOLIC ACID [Concomitant]
     Dosage: 1 MG, QD
     Route: 048
     Dates: start: 20090101
  5. LEVOTHYROXINE SODIUM [Concomitant]
     Dosage: 150 MG, QD
  6. QUETIAPINE [Concomitant]

REACTIONS (2)
  - OROPHARYNGEAL PAIN [None]
  - TONSILLAR INFLAMMATION [None]
